FAERS Safety Report 7790864-6 (Version None)
Quarter: 2011Q3

REPORT INFORMATION
  Report Type: 
  Country: None (occurrence: None)
  Receive Date: 20110930
  Receipt Date: 20110921
  Transmission Date: 20111222
  Serious: Yes (Other)
  Sender: FDA-Public Use
  Company Number: US-ASTRAZENECA-2010SE30858

PATIENT
  Age: 50 Year
  Sex: Male
  Weight: 79.4 kg

DRUGS (9)
  1. SEROQUEL XR [Suspect]
     Route: 048
  2. SEROQUEL XR [Suspect]
     Indication: DEPRESSION
     Route: 048
  3. XANAX [Suspect]
     Dosage: ONE TABLET IN THE MORNING AND TWO TABLETS IN THE EVENING
  4. HALDOL [Concomitant]
  5. CYMBALTA [Concomitant]
  6. AMITRIPTYLINE HCL [Concomitant]
  7. THORAZINE [Concomitant]
  8. SEROQUEL XR [Suspect]
     Indication: BIPOLAR DISORDER
     Route: 048
  9. SEROQUEL XR [Suspect]
     Route: 048

REACTIONS (8)
  - MOOD ALTERED [None]
  - RIB FRACTURE [None]
  - CHOLELITHIASIS [None]
  - DRUG DOSE OMISSION [None]
  - CONFUSIONAL STATE [None]
  - NIGHTMARE [None]
  - FALL [None]
  - SLEEP TALKING [None]
